FAERS Safety Report 9847742 (Version 1)
Quarter: 2014Q1

REPORT INFORMATION
  Report Type: Spontaneous
  Country: US (occurrence: US)
  Receive Date: 20140128
  Receipt Date: 20140128
  Transmission Date: 20141002
  Serious: No
  Sender: FDA-Public Use
  Company Number: US-009507513-1401USA011776

PATIENT
  Age: 20 Year
  Sex: Male

DRUGS (2)
  1. SAPHRIS [Suspect]
     Dosage: 10 MG, HS
     Route: 060
     Dates: start: 20130924
  2. LAMICTAL [Concomitant]

REACTIONS (2)
  - Drug ineffective [Unknown]
  - Inappropriate schedule of drug administration [Unknown]
